FAERS Safety Report 16687369 (Version 1)
Quarter: 2019Q3

REPORT INFORMATION
  Report Type: Spontaneous
  Country: US (occurrence: US)
  Receive Date: 20190809
  Receipt Date: 20190809
  Transmission Date: 20191004
  Serious: No
  Sender: FDA-Public Use
  Company Number: US-TARO-2018TAR00838

PATIENT
  Sex: Male

DRUGS (5)
  1. WARFARIN SODIUM TABLETS USP 10MG [Suspect]
     Active Substance: WARFARIN SODIUM
     Dosage: 10 MG, EVERY 48 HOURS (TOTAL WEEKLY DOSE IS 60 MG)
     Dates: end: 201811
  2. WARFARIN SODIUM TABLETS USP 4MG [Suspect]
     Active Substance: WARFARIN SODIUM
     Dosage: 12 MG, EVERY 48 HOURS (TOTAL WEEKLY DOSE IS 60 MG)
     Route: 048
     Dates: end: 201811
  3. WARFARIN SODIUM TABLETS USP 4MG [Suspect]
     Active Substance: WARFARIN SODIUM
     Dosage: TOTAL WEEKLY DOSE OF 80 MG TO 84 MG
     Dates: start: 201811
  4. JARDIANCE [Suspect]
     Active Substance: EMPAGLIFLOZIN
     Dosage: 25 MG, 1X/DAY
     Dates: start: 201810
  5. WARFARIN SODIUM TABLETS USP 10MG [Suspect]
     Active Substance: WARFARIN SODIUM
     Dosage: TOTAL WEEKLY DOSE OF 80 MG TO 84 MG
     Dates: start: 201811

REACTIONS (3)
  - International normalised ratio decreased [Not Recovered/Not Resolved]
  - Drug ineffective [Not Recovered/Not Resolved]
  - Product quality issue [Not Recovered/Not Resolved]

NARRATIVE: CASE EVENT DATE: 2018
